FAERS Safety Report 18284230 (Version 6)
Quarter: 2020Q4

REPORT INFORMATION
  Report Type: Spontaneous
  Country: US (occurrence: US)
  Receive Date: 20200918
  Receipt Date: 20201110
  Transmission Date: 20210113
  Serious: No
  Sender: FDA-Public Use
  Company Number: US-PFIZER INC-2020358102

PATIENT
  Age: 63 Year
  Sex: Male

DRUGS (1)
  1. LYRICA [Suspect]
     Active Substance: PREGABALIN
     Indication: NEUROPATHY PERIPHERAL
     Dosage: UNK

REACTIONS (4)
  - Insomnia [Unknown]
  - Feeling abnormal [Unknown]
  - Frustration tolerance decreased [Unknown]
  - Pain [Unknown]

NARRATIVE: CASE EVENT DATE: 2020
